FAERS Safety Report 17745843 (Version 1)
Quarter: 2020Q2

REPORT INFORMATION
  Report Type: Spontaneous
  Country: SI (occurrence: SI)
  Receive Date: 20200505
  Receipt Date: 20200505
  Transmission Date: 20200714
  Serious: Yes (Other)
  Sender: FDA-Public Use
  Company Number: SI-TEVA-2020-SI-1228870

PATIENT
  Age: 68 Year
  Sex: Male

DRUGS (5)
  1. MIDAZOLAM. [Concomitant]
     Active Substance: MIDAZOLAM
  2. PARACETAMOL [Concomitant]
     Active Substance: ACETAMINOPHEN
  3. LOPINAVIR/RITONAVIR [Concomitant]
     Active Substance: LOPINAVIR\RITONAVIR
  4. HYDROXYCHLOROQUINE SULFATE 200 MG [Suspect]
     Active Substance: HYDROXYCHLOROQUINE SULFATE
     Indication: CORONAVIRUS INFECTION
     Dosage: 200 MG,THE FIRST DAY 1000MG, THEN 500MG, THERAPY LASTED FOR 3 DAYS
     Route: 048
     Dates: start: 20200401, end: 20200402
  5. SUMAMED 500 MG [Suspect]
     Active Substance: AZITHROMYCIN
     Indication: CORONAVIRUS INFECTION
     Dosage: 200 MG
     Route: 042
     Dates: start: 20200401, end: 20200402

REACTIONS (1)
  - Electrocardiogram QT prolonged [Recovered/Resolved]

NARRATIVE: CASE EVENT DATE: 20200401
